FAERS Safety Report 25181215 (Version 1)
Quarter: 2025Q2

REPORT INFORMATION
  Report Type: Spontaneous
  Country: US (occurrence: US)
  Receive Date: 20250410
  Receipt Date: 20250410
  Transmission Date: 20250716
  Serious: Yes (Hospitalization, Other)
  Sender: JOHNSON AND JOHNSON
  Company Number: US-JNJFOC-20250401718

PATIENT
  Sex: Male

DRUGS (1)
  1. INVEGA [Suspect]
     Active Substance: PALIPERIDONE
     Indication: Product used for unknown indication
     Route: 048

REACTIONS (5)
  - Hospitalisation [Unknown]
  - Tardive dyskinesia [Unknown]
  - Restlessness [Unknown]
  - Tremor [Unknown]
  - Adverse event [Unknown]
